FAERS Safety Report 21131203 (Version 2)
Quarter: 2022Q3

REPORT INFORMATION
  Report Type: Report from Study
  Country: CA (occurrence: CA)
  Receive Date: 20220726
  Receipt Date: 20220914
  Transmission Date: 20221026
  Serious: Yes (Other)
  Sender: FDA-Public Use
  Company Number: CA-TAKEDA-2022TUS039004

PATIENT
  Age: 64 Year
  Sex: Male

DRUGS (10)
  1. VEDOLIZUMAB [Suspect]
     Active Substance: VEDOLIZUMAB
     Indication: Crohn^s disease
     Dosage: 300 MILLIGRAM
     Route: 042
  2. VEDOLIZUMAB [Suspect]
     Active Substance: VEDOLIZUMAB
     Dosage: 300 MILLIGRAM
     Route: 042
  3. VEDOLIZUMAB [Suspect]
     Active Substance: VEDOLIZUMAB
     Dosage: 300 MILLIGRAM
     Route: 042
     Dates: end: 20220624
  4. PREDNISONE [Concomitant]
     Active Substance: PREDNISONE
     Dosage: UNK
  5. NEXIUM [Concomitant]
     Active Substance: ESOMEPRAZOLE MAGNESIUM
     Dosage: UNK
  6. CELEBREX [Concomitant]
     Active Substance: CELECOXIB
     Dosage: UNK
  7. DILAUDID [Concomitant]
     Active Substance: HYDROMORPHONE HYDROCHLORIDE
     Dosage: UNK
  8. PERINDOPRIL [Concomitant]
     Active Substance: PERINDOPRIL
     Dosage: UNK
  9. PAXIL [Concomitant]
     Active Substance: PAROXETINE HYDROCHLORIDE
     Dosage: UNK
  10. ATIVAN [Concomitant]
     Active Substance: LORAZEPAM
     Dosage: UNK

REACTIONS (13)
  - Mental impairment [Unknown]
  - Ankylosing spondylitis [Unknown]
  - Nervousness [Unknown]
  - Blood pressure increased [Unknown]
  - Asthenia [Unknown]
  - Abdominal discomfort [Unknown]
  - Anxiety [Unknown]
  - Depression [Unknown]
  - Insomnia [Unknown]
  - Amnesia [Unknown]
  - Muscular weakness [Unknown]
  - Back pain [Unknown]
  - Arthralgia [Unknown]
